FAERS Safety Report 23556006 (Version 3)
Quarter: 2024Q1

REPORT INFORMATION
  Report Type: Report from Study
  Country: DE (occurrence: DE)
  Receive Date: 20240222
  Receipt Date: 20240318
  Transmission Date: 20240410
  Serious: Yes (Death, Hospitalization, Other)
  Sender: FDA-Public Use
  Company Number: DE-ABBVIE-5648424

PATIENT
  Age: 77 Year
  Sex: Male
  Weight: 66 kg

DRUGS (14)
  1. CARBIDOPA\LEVODOPA [Suspect]
     Active Substance: CARBIDOPA\LEVODOPA
     Indication: Parkinson^s disease
     Dosage: MD: 4.5ML; CRD: 4.1ML/H; CRN: 1.8ML/H; ED: 1.0ML
     Route: 050
     Dates: start: 20230228
  2. CARBIDOPA\LEVODOPA [Suspect]
     Active Substance: CARBIDOPA\LEVODOPA
     Dosage: MD 4.5 ML; KRT 4.8ML/H; CRN 1.8 ML/H; ED: 1.0 ML
     Route: 050
  3. BENSERAZIDE HYDROCHLORIDE\LEVODOPA [Concomitant]
     Active Substance: BENSERAZIDE HYDROCHLORIDE\LEVODOPA
     Indication: Product used for unknown indication
     Dosage: 100/25 MG
  4. BENSERAZIDE HYDROCHLORIDE\LEVODOPA [Concomitant]
     Active Substance: BENSERAZIDE HYDROCHLORIDE\LEVODOPA
     Indication: Product used for unknown indication
     Dosage: TIME INTERVAL: 0.125 DAYS: 100/25 MG
  5. BENSERAZIDE HYDROCHLORIDE\LEVODOPA [Concomitant]
     Active Substance: BENSERAZIDE HYDROCHLORIDE\LEVODOPA
     Indication: Product used for unknown indication
     Dosage: 100/25 MG?MADOPAR RETARD
  6. SERTRALINE [Concomitant]
     Active Substance: SERTRALINE HYDROCHLORIDE
     Indication: Product used for unknown indication
  7. FOLIC ACID [Concomitant]
     Active Substance: FOLIC ACID
     Indication: Product used for unknown indication
  8. MORPHINE [Concomitant]
     Active Substance: MORPHINE
     Indication: Pain
     Dosage: TIME INTERVAL: AS NECESSARY: FREQUENCY TEXT: UP TO 4 TIMES PER DAY
     Route: 058
  9. QUETIAPINE FUMARATE [Concomitant]
     Active Substance: QUETIAPINE FUMARATE
     Indication: Product used for unknown indication
  10. CARVEDILOL [Concomitant]
     Active Substance: CARVEDILOL
     Indication: Product used for unknown indication
  11. PRUCALOPRIDE SUCCINATE [Concomitant]
     Active Substance: PRUCALOPRIDE SUCCINATE
     Indication: Product used for unknown indication
  12. QUETIAPINE [Concomitant]
     Active Substance: QUETIAPINE
     Indication: Product used for unknown indication
  13. MIDAZOLAM HYDROCHLORIDE [Concomitant]
     Active Substance: MIDAZOLAM HYDROCHLORIDE
     Indication: Restlessness
     Dosage: TIME INTERVAL: AS NECESSARY: FREQUENCY TEXT: UP TO 4 TIMES PER DAY
     Route: 002
  14. DIGITOXIN [Concomitant]
     Active Substance: DIGITOXIN
     Indication: Product used for unknown indication
     Dosage: FREQUENCY TEXT: 1/2TBL ON MO,WE,FR,SU 1TBL ON TU,TH,SA

REACTIONS (29)
  - Death [Fatal]
  - Intentional medical device removal by patient [Recovered/Resolved]
  - Craniocerebral injury [Unknown]
  - General physical health deterioration [Not Recovered/Not Resolved]
  - Slow speech [Unknown]
  - Cachexia [Unknown]
  - Reduced facial expression [Unknown]
  - Delirium [Unknown]
  - Epilepsy [Unknown]
  - Transient ischaemic attack [Unknown]
  - Microcytic anaemia [Unknown]
  - Type 2 diabetes mellitus [Unknown]
  - Benign prostatic hyperplasia [Unknown]
  - Carotid artery stenosis [Unknown]
  - Dyslipidaemia [Unknown]
  - Pallor [Unknown]
  - Progressive supranuclear palsy [Unknown]
  - COVID-19 [Unknown]
  - Hyperlipidaemia [Unknown]
  - Metastatic renal cell carcinoma [Unknown]
  - Fall [Unknown]
  - Atrial fibrillation [Unknown]
  - Anaemia folate deficiency [Unknown]
  - Myoclonus [Unknown]
  - Drug ineffective [Unknown]
  - Gaze palsy [Unknown]
  - Subdural haematoma [Unknown]
  - Wound [Unknown]
  - Dysarthria [Unknown]

NARRATIVE: CASE EVENT DATE: 20230605
